FAERS Safety Report 9396047 (Version 1)
Quarter: 2013Q3

REPORT INFORMATION
  Report Type: Spontaneous
  Country: FR (occurrence: FR)
  Receive Date: 20130711
  Receipt Date: 20130711
  Transmission Date: 20140515
  Serious: Yes (Life-Threatening)
  Sender: FDA-Public Use
  Company Number: FR-ASTRAZENECA-2013SE51109

PATIENT
  Age: 30489 Day
  Sex: Male

DRUGS (8)
  1. ZESTRIL [Suspect]
     Route: 048
     Dates: end: 20130618
  2. EUCREAS [Suspect]
     Dosage: 50 MG / 1000 MG PER DOSE, ONE DF TWO TIMES PER DAY
     Route: 048
     Dates: end: 20130618
  3. ARICEPT [Concomitant]
  4. DAFALGAN [Concomitant]
  5. EBIXA [Concomitant]
  6. TAHOR [Concomitant]
  7. NOVONORM [Concomitant]
  8. INEXIUM [Concomitant]
     Route: 048

REACTIONS (4)
  - Dyspnoea [Recovered/Resolved]
  - Speech disorder [Recovered/Resolved]
  - Face oedema [Recovered/Resolved]
  - Hypoglycaemia [Unknown]
